FAERS Safety Report 24061062 (Version 4)
Quarter: 2025Q3

REPORT INFORMATION
  Report Type: Spontaneous
  Country: US (occurrence: US)
  Receive Date: 20240708
  Receipt Date: 20250915
  Transmission Date: 20251020
  Serious: No
  Sender: PFIZER
  Company Number: US-PFIZER INC-PV202400087010

PATIENT
  Age: 61 Year
  Sex: Female

DRUGS (2)
  1. TUKYSA [Suspect]
     Active Substance: TUCATINIB
     Dosage: 150MG 2 TABLETS TWICE A DAY
     Route: 048
     Dates: end: 20250221
  2. TUKYSA [Suspect]
     Active Substance: TUCATINIB
     Dosage: 250 MG, 2X/DAY

REACTIONS (3)
  - Rhinorrhoea [Unknown]
  - Gingival pain [Unknown]
  - Platelet count decreased [Unknown]
